FAERS Safety Report 11017974 (Version 2)
Quarter: 2015Q2

REPORT INFORMATION
  Report Type: Spontaneous
  Country: US (occurrence: US)
  Receive Date: 20150412
  Receipt Date: 20150525
  Transmission Date: 20150821
  Serious: No
  Sender: FDA-Public Use
  Company Number: US-JNJFOC-20130412147

PATIENT
  Age: 21 Year
  Sex: Female
  Weight: 63.5 kg

DRUGS (2)
  1. ORTHO EVRA [Suspect]
     Active Substance: ETHINYL ESTRADIOL\NORELGESTROMIN
     Indication: MENSTRUATION IRREGULAR
     Route: 062
     Dates: start: 20120808, end: 20130418
  2. ORTHO EVRA [Suspect]
     Active Substance: ETHINYL ESTRADIOL\NORELGESTROMIN
     Indication: CONTRACEPTION
     Route: 062
     Dates: start: 20120808, end: 20130418

REACTIONS (7)
  - Wrong technique in drug usage process [Recovering/Resolving]
  - Application site pruritus [Unknown]
  - Product use issue [Unknown]
  - Application site pain [Unknown]
  - Inappropriate schedule of drug administration [Not Recovered/Not Resolved]
  - Application site erythema [Not Recovered/Not Resolved]
  - Product quality issue [Unknown]

NARRATIVE: CASE EVENT DATE: 201304
